FAERS Safety Report 7128602-2 (Version None)
Quarter: 2010Q4

REPORT INFORMATION
  Report Type: 
  Country: None (occurrence: None)
  Receive Date: 20101130
  Receipt Date: 20101124
  Transmission Date: 20110411
  Serious: Yes (Hospitalization, Other)
  Sender: FDA-Public Use
  Company Number: GB-ROCHE-363826

PATIENT
  Sex: Female
  Weight: 75.2 kg

DRUGS (11)
  1. TRASTUZUMAB [Suspect]
     Indication: BREAST CANCER
     Route: 042
     Dates: start: 20031222, end: 20040406
  2. TRASTUZUMAB [Suspect]
     Dosage: LOADING DOSE.
     Route: 042
     Dates: start: 20031201, end: 20031201
  3. TRASTUZUMAB [Suspect]
     Route: 042
     Dates: start: 20040414, end: 20051215
  4. AMLODIPINE [Concomitant]
  5. BECLOMETHASONE INHALER [Concomitant]
  6. COMBIVENT [Concomitant]
  7. DIHYDROCODEINE [Concomitant]
  8. AMITRIPTYLINE [Concomitant]
  9. BENDROFLUAZIDE [Concomitant]
  10. ASPIRIN [Concomitant]
  11. FRUSEMIDE [Concomitant]

REACTIONS (2)
  - CHRONIC OBSTRUCTIVE PULMONARY DISEASE [None]
  - MYOCARDIAL INFARCTION [None]
